FAERS Safety Report 4359475-9 (Version None)
Quarter: 2004Q2

REPORT INFORMATION
  Report Type: 
  Country: None (occurrence: None)
  Receive Date: 20040518
  Receipt Date: 20031028
  Transmission Date: 20050107
  Serious: No
  Sender: FDA-Public Use
  Company Number: US-BRISTOL-MYERS SQUIBB COMPANY-12420576

PATIENT
  Age: 65 Year
  Sex: Female

DRUGS (5)
  1. TESLAC TABS 50 MG [Suspect]
     Indication: URINARY TRACT INFECTION
     Route: 048
     Dates: start: 20031027, end: 20031027
  2. TOPROL-XL [Concomitant]
     Indication: HYPERTENSION
  3. KLONOPIN [Concomitant]
  4. LORAZEPAM [Concomitant]
  5. NEURONTIN [Concomitant]

REACTIONS (1)
  - MEDICATION ERROR [None]
